FAERS Safety Report 8716328 (Version 3)
Quarter: 2014Q3

REPORT INFORMATION
  Report Type: Spontaneous
  Country: US (occurrence: US)
  Receive Date: 20120810
  Receipt Date: 20140728
  Transmission Date: 20150326
  Serious: Yes (Hospitalization, Other)
  Sender: FDA-Public Use
  Company Number: US-009507513-2011SP046642

PATIENT
  Sex: Female
  Weight: 163.26 kg

DRUGS (1)
  1. NUVARING [Suspect]
     Active Substance: ETHINYL ESTRADIOL\ETONOGESTREL
     Indication: CONTRACEPTION
     Route: 067
     Dates: start: 2004, end: 20061104

REACTIONS (12)
  - Anxiety [Unknown]
  - Abortion spontaneous [Unknown]
  - Pulmonary embolism [Unknown]
  - Physical assault [Unknown]
  - Deep vein thrombosis [Unknown]
  - Gonorrhoea [Unknown]
  - Depression [Not Recovered/Not Resolved]
  - Obsessive-compulsive disorder [Unknown]
  - Suicide attempt [Unknown]
  - Mental disorder [Unknown]
  - Maternal exposure before pregnancy [Unknown]
  - Insomnia [Unknown]

NARRATIVE: CASE EVENT DATE: 2004
